FAERS Safety Report 25535798 (Version 1)
Quarter: 2025Q3

REPORT INFORMATION
  Report Type: Spontaneous
  Country: US (occurrence: US)
  Receive Date: 20250709
  Receipt Date: 20250709
  Transmission Date: 20251020
  Serious: Yes (Hospitalization)
  Sender: ROCHE
  Company Number: US-ROCHE-10000329531

PATIENT
  Sex: Female

DRUGS (12)
  1. XOLAIR [Suspect]
     Active Substance: OMALIZUMAB
     Indication: Asthma
     Route: 058
     Dates: start: 20250130
  2. XOLAIR [Suspect]
     Active Substance: OMALIZUMAB
     Indication: Asthma
  3. ALBUTEROL SULFATE [Concomitant]
     Active Substance: ALBUTEROL SULFATE
  4. AMITIZA [Concomitant]
     Active Substance: LUBIPROSTONE
  5. BETAMETH dip [Concomitant]
  6. CICLOPIROX [Concomitant]
     Active Substance: CICLOPIROX
  7. CLARISCAN [Concomitant]
     Active Substance: GADOTERATE MEGLUMINE
  8. DITROPAN XL [Concomitant]
     Active Substance: OXYBUTYNIN CHLORIDE
  9. DUPIXENT [Concomitant]
     Active Substance: DUPILUMAB
  10. ERYTHROMYCIN [Concomitant]
     Active Substance: ERYTHROMYCIN
  11. FAMOTIDINE [Concomitant]
     Active Substance: FAMOTIDINE
  12. FLOMAX [Concomitant]
     Active Substance: TAMSULOSIN HYDROCHLORIDE

REACTIONS (2)
  - Asthma [Unknown]
  - Respiratory failure [Unknown]
